FAERS Safety Report 8262284-1 (Version None)
Quarter: 2012Q2

REPORT INFORMATION
  Report Type: 
  Country: None (occurrence: None)
  Receive Date: 20120405
  Receipt Date: 20120325
  Transmission Date: 20120825
  Serious: Yes (Other)
  Sender: FDA-Public Use
  Company Number: US-ELI_LILLY_AND_COMPANY-US201203008402

PATIENT
  Age: 29 Year
  Sex: Male

DRUGS (4)
  1. ASPIRIN [Concomitant]
     Dosage: 325 MG, UNK
     Route: 048
  2. ASPIRIN [Concomitant]
     Dosage: 150 MG, UNK
  3. EFFIENT [Suspect]
     Dosage: 60 MG, LOADING DOSE
  4. EFFIENT [Suspect]
     Dosage: 10 MG, MAINTENANCE

REACTIONS (1)
  - DUODENAL ULCER PERFORATION [None]
